FAERS Safety Report 8513635-1 (Version None)
Quarter: 2012Q3

REPORT INFORMATION
  Report Type: 
  Country: None (occurrence: None)
  Receive Date: 20120717
  Receipt Date: 20120711
  Transmission Date: 20120928
  Serious: Yes (Other)
  Sender: FDA-Public Use
  Company Number: US-PFIZER INC-2012162034

PATIENT
  Sex: Female
  Weight: 77.098 kg

DRUGS (1)
  1. EFFEXOR XR [Suspect]
     Indication: BIPOLAR DISORDER
     Dosage: 150 MG, DAILY
     Route: 048

REACTIONS (2)
  - DIABETES MELLITUS [None]
  - DRUG WITHDRAWAL SYNDROME [None]
